FAERS Safety Report 9653906 (Version 2)
Quarter: 2013Q4

REPORT INFORMATION
  Report Type: Spontaneous
  Country: US (occurrence: None)
  Receive Date: 20131028
  Receipt Date: 20131104
  Transmission Date: 20140711
  Serious: Yes (Death)
  Sender: FDA-Public Use
  Company Number: ADR-2013-01930

PATIENT
  Sex: Male

DRUGS (3)
  1. BACLOFEN [Suspect]
     Indication: CANCER PAIN
     Dosage: 100.14 MCG/DAY
  2. DILAUDID [Suspect]
     Dosage: 0.2003 MG/DAY
  3. BUPIVACAINE [Suspect]

REACTIONS (2)
  - Metastatic renal cell carcinoma [None]
  - Condition aggravated [None]
